FAERS Safety Report 19917014 (Version 2)
Quarter: 2021Q4

REPORT INFORMATION
  Report Type: Other
  Country: CA (occurrence: CA)
  Receive Date: 20211005
  Receipt Date: 20211019
  Transmission Date: 20220304
  Serious: Yes (Death, Other)
  Sender: FDA-Public Use
  Company Number: CA-CELLTRION INC.-2021CA011844

PATIENT

DRUGS (24)
  1. RITUXIMAB [Suspect]
     Active Substance: RITUXIMAB
     Indication: Rheumatoid arthritis
     Dosage: 1000 MILLIGRAM
     Route: 041
  2. RITUXIMAB [Suspect]
     Active Substance: RITUXIMAB
     Dosage: 1000 MILLIGRAM
     Route: 042
  3. ACETAMINOPHEN [Concomitant]
     Active Substance: ACETAMINOPHEN
     Indication: Premedication
     Dosage: 650 MG
     Route: 048
  4. ALFACALCIDOL [Concomitant]
     Active Substance: ALFACALCIDOL
  5. AMLODIPINE [Concomitant]
     Active Substance: AMLODIPINE BESYLATE
  6. SULFAMETHOXAZOLE\TRIMETHOPRIM [Concomitant]
     Active Substance: SULFAMETHOXAZOLE\TRIMETHOPRIM
  7. ASPIRIN [Concomitant]
     Active Substance: ASPIRIN
  8. ATORVASTATIN [Concomitant]
     Active Substance: ATORVASTATIN
     Route: 065
  9. CHOLECALCIFEROL [Concomitant]
     Active Substance: CHOLECALCIFEROL
  10. DIPHENHYDRAMINE [Concomitant]
     Active Substance: DIPHENHYDRAMINE
     Indication: Premedication
     Dosage: 50 MILLIGRAM
     Route: 048
  11. DOCUSATE SODIUM [Concomitant]
     Active Substance: DOCUSATE SODIUM
  12. LASIX [Concomitant]
     Active Substance: FUROSEMIDE
  13. FOLIC ACID [Concomitant]
     Active Substance: FOLIC ACID
  14. MACROGOL 4000;PROPYLENE GLYCOL [Concomitant]
  15. METHOTREXATE [Concomitant]
     Active Substance: METHOTREXATE
     Route: 048
  16. METOPROLOL [Concomitant]
     Active Substance: METOPROLOL
  17. METHYLPREDNISOLONE [Concomitant]
     Active Substance: METHYLPREDNISOLONE
     Indication: Premedication
     Dosage: 100 MG
     Route: 042
  18. NAPROXEN [Concomitant]
     Active Substance: NAPROXEN
  19. OMEPRAZOLE [Concomitant]
     Active Substance: OMEPRAZOLE
  20. OXYCODONE [Concomitant]
     Active Substance: OXYCODONE
  21. RIFAMPIN [Concomitant]
     Active Substance: RIFAMPIN
  22. SENOKOT [Concomitant]
     Active Substance: SENNOSIDES
  23. ASPIRIN [Concomitant]
     Active Substance: ASPIRIN
  24. TYLENOL EXTRA STRENGTH [Concomitant]
     Active Substance: ACETAMINOPHEN

REACTIONS (2)
  - Death [Fatal]
  - COVID-19 [Unknown]
